FAERS Safety Report 5303314-6 (Version None)
Quarter: 2007Q2

REPORT INFORMATION
  Report Type: 
  Country: None (occurrence: None)
  Receive Date: 20070420
  Receipt Date: 20070416
  Transmission Date: 20071010
  Serious: Yes (Disabling, Other)
  Sender: FDA-Public Use
  Company Number: JP-GLAXOSMITHKLINE-B0466361A

PATIENT
  Age: 11 Year
  Sex: Male
  Weight: 42 kg

DRUGS (5)
  1. ALKERAN [Suspect]
     Indication: ALLOGENIC BONE MARROW TRANSPLANTATION THERAPY
     Route: 042
     Dates: start: 20051112, end: 20051114
  2. GRAN [Concomitant]
     Dates: start: 20051121, end: 20051202
  3. TACROLIMUS HYDRATE [Concomitant]
     Indication: IMMUNOSUPPRESSANT DRUG THERAPY
     Dosage: .8MG PER DAY
     Route: 065
     Dates: start: 20051115, end: 20051121
  4. METHOTREXATE [Concomitant]
     Indication: IMMUNOSUPPRESSANT DRUG THERAPY
     Dosage: 13MG PER DAY
     Route: 065
     Dates: start: 20051117, end: 20051122
  5. PREDONINE [Concomitant]
     Indication: IMMUNOSUPPRESSANT DRUG THERAPY
     Dosage: 50MG PER DAY
     Route: 065
     Dates: start: 20051130, end: 20060424

REACTIONS (3)
  - ORAL PAIN [None]
  - SEPSIS [None]
  - STOMATITIS [None]
